FAERS Safety Report 7261540-3 (Version None)
Quarter: 2011Q1

REPORT INFORMATION
  Report Type: 
  Country: None (occurrence: None)
  Receive Date: 20110130
  Receipt Date: 20100920
  Transmission Date: 20110831
  Serious: No
  Sender: FDA-Public Use
  Company Number: US-ABBOTT-10P-163-0672691-00

PATIENT
  Sex: Male

DRUGS (6)
  1. HUMIRA [Suspect]
     Route: 058
  2. LORTAB [Concomitant]
     Indication: PAIN
  3. HUMIRA [Suspect]
     Indication: CROHN'S DISEASE
     Route: 058
  4. CITALOPRAM [Concomitant]
     Indication: PRODUCT USED FOR UNKNOWN INDICATION
     Route: 048
  5. PENTASA [Concomitant]
     Indication: PRODUCT USED FOR UNKNOWN INDICATION
     Route: 048
  6. LISINOPRIL [Concomitant]
     Indication: PRODUCT USED FOR UNKNOWN INDICATION
     Route: 048

REACTIONS (1)
  - CONTUSION [None]
